FAERS Safety Report 21623962 (Version 1)
Quarter: 2022Q4

REPORT INFORMATION
  Report Type: Spontaneous
  Country: US (occurrence: US)
  Receive Date: 20221121
  Receipt Date: 20221121
  Transmission Date: 20230113
  Serious: No
  Sender: FDA-Public Use
  Company Number: US-PERRIGO-21US030463

PATIENT
  Sex: Male

DRUGS (1)
  1. NICOTINE POLACRILEX [Suspect]
     Active Substance: NICOTINE
     Indication: Product used for unknown indication
     Dosage: 4 MG, SINGLE
     Route: 002
     Dates: start: 20211029, end: 20211029

REACTIONS (3)
  - Abdominal pain upper [Unknown]
  - Nausea [Unknown]
  - Hiccups [Unknown]

NARRATIVE: CASE EVENT DATE: 20211029
